FAERS Safety Report 9701737 (Version 1)
Quarter: 2013Q4

REPORT INFORMATION
  Report Type: Spontaneous
  Country: FR (occurrence: FR)
  Receive Date: 20131121
  Receipt Date: 20131121
  Transmission Date: 20140711
  Serious: Yes (Hospitalization)
  Sender: FDA-Public Use
  Company Number: FR-ASTRAZENECA-2013SE84481

PATIENT
  Age: 29723 Day
  Sex: Female

DRUGS (8)
  1. INEXIUM [Suspect]
     Route: 048
  2. IMOVANE [Suspect]
     Route: 048
     Dates: start: 20130924, end: 20130927
  3. AMLOR [Suspect]
     Route: 048
  4. AMLOR [Suspect]
     Route: 048
  5. SOTALOL [Suspect]
     Route: 048
  6. PREVISCAN [Suspect]
     Route: 048
  7. DOLIPRANE [Concomitant]
     Indication: PRODUCT USED FOR UNKNOWN INDICATION
  8. LUTENYL [Concomitant]

REACTIONS (13)
  - Loss of consciousness [Recovered/Resolved]
  - Orthostatic hypotension [Recovered/Resolved]
  - Hypotension [Unknown]
  - Urinary incontinence [Unknown]
  - Amnesia [Unknown]
  - Asthenia [Unknown]
  - Urinary tract infection [Unknown]
  - Klebsiella test positive [Unknown]
  - Anhedonia [Unknown]
  - Malaise [Recovered/Resolved]
  - Hypoalbuminaemia [Unknown]
  - Oedema peripheral [Unknown]
  - Headache [Unknown]
